FAERS Safety Report 12561645 (Version 1)
Quarter: 2016Q3

REPORT INFORMATION
  Report Type: Spontaneous
  Country: US (occurrence: US)
  Receive Date: 20160715
  Receipt Date: 20160715
  Transmission Date: 20161109
  Serious: No
  Sender: FDA-Public Use
  Company Number: US-IGSA-GTI003675

PATIENT
  Age: 7 Year
  Sex: Female

DRUGS (6)
  1. CLINDAMYCIN [Concomitant]
     Active Substance: CLINDAMYCIN\CLINDAMYCIN PHOSPHATE
  2. VANCOMYCIN [Concomitant]
     Active Substance: VANCOMYCIN
  3. DOXYCYCLINE. [Concomitant]
     Active Substance: DOXYCYCLINE
  4. IGIV (MANUFACTURER UNKNOWN) 10% (10 PCT) [Suspect]
     Active Substance: HUMAN IMMUNOGLOBULIN G
     Route: 042
  5. ACYCLOVIR /00587301/ [Concomitant]
     Active Substance: ACYCLOVIR
  6. CEFTRIAXONE. [Concomitant]
     Active Substance: CEFTRIAXONE

REACTIONS (2)
  - Periorbital oedema [Recovered/Resolved]
  - Dyspnoea [Recovered/Resolved]
